FAERS Safety Report 24923203 (Version 1)
Quarter: 2025Q1

REPORT INFORMATION
  Report Type: Spontaneous
  Country: NL (occurrence: NL)
  Receive Date: 20250204
  Receipt Date: 20250204
  Transmission Date: 20250409
  Serious: Yes (Hospitalization, Other)
  Sender: MYLAN
  Company Number: NL-PFIZER INC-2011269265

PATIENT
  Age: 42 Year
  Sex: Male

DRUGS (6)
  1. GABAPENTIN [Suspect]
     Active Substance: GABAPENTIN
     Indication: Neuralgia
     Route: 065
  2. GABAPENTIN [Suspect]
     Active Substance: GABAPENTIN
     Indication: Complex regional pain syndrome
  3. PREGABALIN [Suspect]
     Active Substance: PREGABALIN
     Indication: Neuralgia
     Route: 065
  4. PREGABALIN [Suspect]
     Active Substance: PREGABALIN
     Indication: Complex regional pain syndrome
  5. TRAMADOL [Suspect]
     Active Substance: TRAMADOL
     Indication: Complex regional pain syndrome
     Route: 065
  6. AMITRIPTYLINE [Concomitant]
     Active Substance: AMITRIPTYLINE
     Indication: Complex regional pain syndrome
     Route: 048

REACTIONS (5)
  - Ileus [Recovered/Resolved]
  - Feeling abnormal [Unknown]
  - Somnolence [Unknown]
  - Drug ineffective [Unknown]
  - Off label use [Unknown]
